FAERS Safety Report 24959499 (Version 2)
Quarter: 2025Q1

REPORT INFORMATION
  Report Type: Spontaneous
  Country: JP (occurrence: JP)
  Receive Date: 20250212
  Receipt Date: 20250311
  Transmission Date: 20250409
  Serious: Yes (Death, Hospitalization, Other)
  Sender: NOVARTIS
  Company Number: JP-002147023-NVSJ2025JP001505

PATIENT
  Age: 15 Year
  Sex: Male
  Weight: 53.9 kg

DRUGS (4)
  1. TAFINLAR [Suspect]
     Active Substance: DABRAFENIB MESYLATE
     Indication: Pancreatoblastoma
     Route: 048
     Dates: start: 202401
  2. TAFINLAR [Suspect]
     Active Substance: DABRAFENIB MESYLATE
     Indication: BRAF V600E mutation positive
  3. MEKINIST [Suspect]
     Active Substance: TRAMETINIB DIMETHYL SULFOXIDE
     Indication: Pancreatoblastoma
     Route: 048
     Dates: start: 202401
  4. MEKINIST [Suspect]
     Active Substance: TRAMETINIB DIMETHYL SULFOXIDE
     Indication: BRAF V600E mutation positive

REACTIONS (5)
  - Death [Fatal]
  - General physical health deterioration [Recovered/Resolved]
  - Pain [Unknown]
  - Gastrointestinal disorder [Unknown]
  - Alpha 1 foetoprotein increased [Not Recovered/Not Resolved]

NARRATIVE: CASE EVENT DATE: 20240502
